FAERS Safety Report 4960130-2 (Version None)
Quarter: 2006Q1

REPORT INFORMATION
  Report Type: 
  Country: None (occurrence: None)
  Receive Date: 20060328
  Receipt Date: 20060315
  Transmission Date: 20060701
  Serious: Yes (Hospitalization, Other)
  Sender: FDA-Public Use
  Company Number: 2006038166

PATIENT
  Sex: Male
  Weight: 108.8633 kg

DRUGS (9)
  1. DILANTIN [Suspect]
     Indication: CONVULSION
  2. NEURONTIN [Suspect]
     Indication: CONVULSION
     Dosage: ORAL
     Route: 048
  3. TEGRETOL [Suspect]
     Indication: CONVULSION
  4. KEPPRA [Suspect]
     Indication: CONVULSION
     Dates: start: 20050701
  5. DRUG, UNSPECIFIED (DRUG, UNSPECIFIED) [Suspect]
     Indication: BLOOD PRESSURE
     Dates: start: 20060301
  6. MELLARIL [Concomitant]
  7. BETA BLOCKING AGENTS (BETA BLOCKING AGENTS) [Concomitant]
  8. ACE INHIBITOR NOS (ACE INHIBITOR NOS) [Concomitant]
  9. ALL OTHER THERAPEUTIC PRODUCTS [Concomitant]

REACTIONS (9)
  - ABDOMINAL DISTENSION [None]
  - BLOOD SODIUM DECREASED [None]
  - CONVULSION [None]
  - GASTROINTESTINAL DISORDER [None]
  - GASTROINTESTINAL HYPOMOTILITY [None]
  - HYPERTENSION [None]
  - HYPOTENSION [None]
  - PANCREATITIS [None]
  - WEIGHT DECREASED [None]
